FAERS Safety Report 18870328 (Version 1)
Quarter: 2021Q1

REPORT INFORMATION
  Report Type: Spontaneous
  Country: US (occurrence: US)
  Receive Date: 20210209
  Receipt Date: 20210209
  Transmission Date: 20210420
  Serious: Yes (Other)
  Sender: FDA-Public Use
  Company Number: US-HORIZON THERAPEUTICS-HZN-2021-000103

PATIENT

DRUGS (10)
  1. CLINDAMYCIN. [Concomitant]
     Active Substance: CLINDAMYCIN
     Indication: RETINITIS
  2. PREDNISOLONE ACETATE. [Suspect]
     Active Substance: PREDNISOLONE ACETATE
     Indication: IRITIS
     Dosage: 1 %
     Route: 065
  3. FOSCARNET [Concomitant]
     Active Substance: FOSCARNET
     Indication: RETINITIS VIRAL
  4. GANCICLOVIR. [Concomitant]
     Active Substance: GANCICLOVIR
     Indication: RETINITIS VIRAL
  5. AZATHIOPRINE. [Suspect]
     Active Substance: AZATHIOPRINE
     Route: 065
  6. PREDNISONE. [Suspect]
     Active Substance: PREDNISONE
     Dosage: 10 MG: PREDNISONE WAS TAPERED OVER TO 10 MG/DAY OVER A 1 WEEK PERIOD
     Route: 065
  7. VALACYCLOVIR HCL [Concomitant]
     Active Substance: VALACYCLOVIR HYDROCHLORIDE
     Indication: RETINITIS VIRAL
     Dosage: 1 G THREE TIMES DAILY
     Route: 065
  8. TRIMETHOPRIM SULFAMETHOXAZOLE [Concomitant]
     Active Substance: SULFAMETHOXAZOLE\TRIMETHOPRIM
     Indication: RETINITIS
     Route: 065
  9. PREDNISONE. [Suspect]
     Active Substance: PREDNISONE
     Indication: RETINITIS VIRAL
     Dosage: 60 MG
     Route: 048
  10. TRIAMCINOLONE [Suspect]
     Active Substance: TRIAMCINOLONE
     Indication: RETINITIS VIRAL
     Dosage: A SUBTENONS TRIAMCINOLONE INJECTION (40 MG/1 CC) WAS ADMINISTERED
     Route: 065

REACTIONS (4)
  - Tractional retinal detachment [Unknown]
  - Uveitis [Unknown]
  - Blindness [Unknown]
  - Rhegmatogenous retinal detachment [Unknown]
